FAERS Safety Report 5076396-7 (Version None)
Quarter: 2006Q3

REPORT INFORMATION
  Report Type: 
  Country: None (occurrence: None)
  Receive Date: 20060807
  Receipt Date: 20060725
  Transmission Date: 20061208
  Serious: Yes (Other)
  Sender: FDA-Public Use
  Company Number: 2006085834

PATIENT
  Age: 60 Year
  Sex: Male

DRUGS (2)
  1. ZYVOX [Suspect]
     Indication: STAPHYLOCOCCAL SEPSIS
  2. VANCOMYCIN [Concomitant]

REACTIONS (1)
  - HYPOACUSIS [None]
